FAERS Safety Report 5893592-7 (Version None)
Quarter: 2008Q3

REPORT INFORMATION
  Report Type: 
  Country: None (occurrence: None)
  Receive Date: 20080923
  Receipt Date: 20080917
  Transmission Date: 20090109
  Serious: Yes (Other)
  Sender: FDA-Public Use
  Company Number: US-GILEAD-2008-0017972

PATIENT
  Sex: Female

DRUGS (16)
  1. LETAIRIS [Suspect]
     Indication: PULMONARY ARTERIAL HYPERTENSION
     Route: 048
     Dates: start: 20080826
  2. LETAIRIS [Suspect]
     Route: 048
     Dates: end: 20080901
  3. POTASSIUM CHLORIDE [Concomitant]
  4. ASCORBIC ACID [Concomitant]
  5. CALCIUM GLUCONATE [Concomitant]
  6. LITHIUM CARBONATE [Concomitant]
  7. SPIRONOLACTONE [Concomitant]
  8. LASIX [Concomitant]
  9. VITAMIN B6 [Concomitant]
  10. KLONOPIN [Concomitant]
  11. VALERIAN [Concomitant]
  12. TRAZODONE HCL [Concomitant]
  13. FOLIC ACID [Concomitant]
  14. MULTIVITAMIN [Concomitant]
  15. COUMADIN [Concomitant]
  16. ARMOUR THYROID [Concomitant]

REACTIONS (5)
  - DYSPNOEA [None]
  - HEADACHE [None]
  - OXYGEN SATURATION DECREASED [None]
  - SINUS CONGESTION [None]
  - SWELLING FACE [None]
